FAERS Safety Report 18585176 (Version 2)
Quarter: 2020Q4

REPORT INFORMATION
  Report Type: Spontaneous
  Country: US (occurrence: US)
  Receive Date: 20201207
  Receipt Date: 20201214
  Transmission Date: 20210114
  Serious: Yes (Hospitalization, Other)
  Sender: FDA-Public Use
  Company Number: US-FRESENIUS MEDICAL CARE RENAL THERAPIES GROUP-FMC-2012-001496

PATIENT
  Age: 72 Year
  Sex: Female
  Weight: 86 kg

DRUGS (2)
  1. DELFLEX WITH DEXTROSE 4.25% LOW MAGNESIUM LOW CALCIUM [Suspect]
     Active Substance: CALCIUM CHLORIDE\DEXTROSE\MAGNESIUM CHLORIDE\SODIUM CHLORIDE\SODIUM LACTATE
     Indication: END STAGE RENAL DISEASE
     Dosage: 2000 ML FOR 4 CYCLES WITH NO LAST FILL AND NO DAYTIME EXCHANGE, SINCE 21MAR2019
     Route: 033
  2. DELFLEX WITH DEXTROSE 2.5% LOW MAGNESIUM LOW CALCIUM [Suspect]
     Active Substance: CALCIUM CHLORIDE\DEXTROSE\MAGNESIUM CHLORIDE\SODIUM CHLORIDE\SODIUM LACTATE
     Indication: END STAGE RENAL DISEASE
     Dosage: 2000 ML FOR 4 CYCLES WITH NO LAST FILL AND NO DAYTIME EXCHANGE, SINCE 21MAR2019
     Route: 033

REACTIONS (2)
  - Pulmonary oedema [Recovering/Resolving]
  - Peritonitis bacterial [Recovered/Resolved]
